FAERS Safety Report 8237310-6 (Version None)
Quarter: 2012Q1

REPORT INFORMATION
  Report Type: 
  Country: None (occurrence: None)
  Receive Date: 20120327
  Receipt Date: 20120316
  Transmission Date: 20120608
  Serious: Yes (Hospitalization)
  Sender: FDA-Public Use
  Company Number: US-BRISTOL-MYERS SQUIBB COMPANY-16461311

PATIENT
  Age: 56 Year
  Sex: Male
  Weight: 59 kg

DRUGS (8)
  1. PEMETREXED DISODIUM [Suspect]
     Indication: NON-SMALL CELL LUNG CANCER
     Dosage: 1 OF 3 WEEK
     Route: 042
     Dates: start: 20110525, end: 20110810
  2. RAMUCIRUMAB [Suspect]
     Indication: NON-SMALL CELL LUNG CANCER
     Dosage: 1 OF 3 WEEK
     Route: 042
     Dates: start: 20110525, end: 20120130
  3. LORAZEPAM [Concomitant]
     Dates: start: 20110525
  4. NORCO [Concomitant]
     Dates: start: 20110401
  5. DOCUSATE SODIUM [Concomitant]
     Indication: DIARRHOEA
     Dates: start: 20110401
  6. CALCIUM CARBONATE [Concomitant]
     Dates: start: 20110407
  7. ALBUTEROL [Concomitant]
     Dates: start: 20110803
  8. CARBOPLATIN [Suspect]
     Indication: NON-SMALL CELL LUNG CANCER
     Dosage: 1 DF = AUC6:DAY 1 OF 3 WK CYCLE  UNIT MG/M2
     Route: 042
     Dates: start: 20110525, end: 20110810

REACTIONS (2)
  - ANAEMIA [None]
  - CONFUSIONAL STATE [None]
